FAERS Safety Report 18533014 (Version 3)
Quarter: 2021Q1

REPORT INFORMATION
  Report Type: Spontaneous
  Country: BR (occurrence: BR)
  Receive Date: 20201123
  Receipt Date: 20210104
  Transmission Date: 20210419
  Serious: Yes (Hospitalization, Other)
  Sender: FDA-Public Use
  Company Number: NVSC2020BR305496

PATIENT
  Age: 46 Year
  Sex: Female

DRUGS (8)
  1. FULVESTRANT. [Suspect]
     Active Substance: FULVESTRANT
     Dosage: 300 MG, QD
     Route: 065
     Dates: start: 20200803
  2. ALPELISIB [Suspect]
     Active Substance: ALPELISIB
     Dosage: 250 MG, QD
     Route: 065
     Dates: start: 20200817
  3. ALPELISIB [Suspect]
     Active Substance: ALPELISIB
     Indication: BREAST CANCER METASTATIC
     Dosage: UNK
     Route: 065
  4. GOSERELIN [Suspect]
     Active Substance: GOSERELIN
     Indication: BREAST CANCER METASTATIC
     Dosage: UNK
     Route: 065
     Dates: start: 20200803
  5. FULVESTRANT. [Suspect]
     Active Substance: FULVESTRANT
     Indication: BREAST CANCER METASTATIC
     Dosage: UNK
     Route: 065
     Dates: start: 20190430, end: 20190620
  6. ALPELISIB [Suspect]
     Active Substance: ALPELISIB
     Dosage: UNK
     Route: 065
     Dates: start: 20200803
  7. PALBOCICLIB [Suspect]
     Active Substance: PALBOCICLIB
     Indication: BREAST CANCER METASTATIC
     Dosage: UNK
     Route: 065
     Dates: start: 20190430, end: 20190620
  8. DEXAMETHASONE. [Concomitant]
     Active Substance: DEXAMETHASONE
     Indication: PRODUCT USED FOR UNKNOWN INDICATION
     Dosage: 4 MG, QD
     Route: 065

REACTIONS (9)
  - Metastases to liver [Unknown]
  - Rash [Unknown]
  - Breast cancer metastatic [Unknown]
  - Nervous system disorder [Unknown]
  - Metastases to central nervous system [Unknown]
  - Neoplasm malignant [Unknown]
  - Endocrine toxicity [Unknown]
  - Hyperglycaemia [Recovered/Resolved]
  - Malignant neoplasm progression [Unknown]

NARRATIVE: CASE EVENT DATE: 20190805
